FAERS Safety Report 7249618-1 (Version None)
Quarter: 2011Q1

REPORT INFORMATION
  Report Type: 
  Country: None (occurrence: None)
  Receive Date: 20110128
  Receipt Date: 20101215
  Transmission Date: 20110831
  Serious: Yes (Hospitalization, Other)
  Sender: FDA-Public Use
  Company Number: US-BAYER-201022761NA

PATIENT
  Sex: Female
  Weight: 41.723 kg

DRUGS (6)
  1. IBUPROFEN [Concomitant]
  2. YAZ [Suspect]
     Indication: CONTRACEPTION
     Dosage: UNK UNK, QD
     Route: 048
     Dates: start: 20080301, end: 20100601
  3. LAXATIVES [Concomitant]
     Dosage: UNK
     Dates: start: 20080510
  4. YAZ [Suspect]
     Indication: PREMENSTRUAL SYNDROME
  5. YASMIN [Suspect]
     Indication: PRODUCT USED FOR UNKNOWN INDICATION
     Route: 048
     Dates: start: 20070401
  6. NITROFURANTOIN [Concomitant]

REACTIONS (10)
  - VOMITING [None]
  - CHOLELITHIASIS [None]
  - ABDOMINAL PAIN UPPER [None]
  - CHOLECYSTITIS ACUTE [None]
  - CHEST PAIN [None]
  - NAUSEA [None]
  - BILIARY COLIC [None]
  - ABDOMINAL PAIN [None]
  - DEHYDRATION [None]
  - TACHYCARDIA [None]
